FAERS Safety Report 16243822 (Version 1)
Quarter: 2019Q2

REPORT INFORMATION
  Report Type: Spontaneous
  Country: US (occurrence: US)
  Receive Date: 20190425
  Receipt Date: 20190425
  Transmission Date: 20190711
  Serious: Yes (Other)
  Sender: FDA-Public Use
  Company Number: None

PATIENT

DRUGS (2)
  1. ZONISAMIDE 100MG CAPSULE GLENMARK PHARMACEUTICALS [Suspect]
     Active Substance: ZONISAMIDE
     Indication: DEPRESSION
     Route: 048
  2. VENLAFAXINE E 150MG CAP [Suspect]
     Active Substance: VENLAFAXINE HYDROCHLORIDE
     Indication: DEPRESSION
     Route: 048

REACTIONS (1)
  - Product appearance confusion [None]

NARRATIVE: CASE EVENT DATE: 20190425
